FAERS Safety Report 19884735 (Version 1)
Quarter: 2021Q3

REPORT INFORMATION
  Report Type: Spontaneous
  Country: US (occurrence: US)
  Receive Date: 20210923
  Receipt Date: 20210923
  Transmission Date: 20211014
  Serious: No
  Sender: FDA-Public Use
  Company Number: None

PATIENT
  Age: 67 Year
  Sex: Male

DRUGS (1)
  1. LISINOPRIL (LISINOPRIL 5MG TAB) [Suspect]
     Active Substance: LISINOPRIL
     Indication: HYPERTENSION
     Route: 048
     Dates: start: 20181130, end: 20210920

REACTIONS (5)
  - Oropharyngeal pain [None]
  - Blood pressure increased [None]
  - Heart rate increased [None]
  - Pyrexia [None]
  - Angioedema [None]

NARRATIVE: CASE EVENT DATE: 20210920
